FAERS Safety Report 9496191 (Version 2)
Quarter: 2013Q3

REPORT INFORMATION
  Report Type: Spontaneous
  Country: CO (occurrence: CO)
  Receive Date: 20130904
  Receipt Date: 20130909
  Transmission Date: 20140515
  Serious: Yes (Other)
  Sender: FDA-Public Use
  Company Number: CO-MERCK-1309COL000205

PATIENT
  Age: 66 Year
  Sex: Male
  Weight: 72 kg

DRUGS (6)
  1. PEG-INTRON [Suspect]
     Indication: HEPATITIS C
     Dosage: UNK, QW; REDIPEN; FORMULATION: PREFILLED PENS
     Route: 058
     Dates: start: 20130214
  2. PEG-INTRON [Suspect]
     Dosage: UNK, QD, WEEKLY
     Route: 058
     Dates: start: 20130905
  3. REBETOL [Suspect]
     Indication: HEPATITIS C
     Dosage: 800 MG, QD, TOTAL DAILY DOSE:800MG
     Route: 048
     Dates: start: 20130214
  4. REBETOL [Suspect]
     Dosage: 800 MG, QD
     Route: 048
     Dates: start: 20130905
  5. VICTRELIS [Suspect]
     Indication: HEPATITIS C
     Dosage: 2400 MG, QD, TOTAL DAILY DOSE: 2400MG
     Route: 048
  6. VICTRELIS [Suspect]
     Dosage: 2400 MG, QD
     Route: 048
     Dates: start: 20130905

REACTIONS (1)
  - Pancytopenia [Recovered/Resolved]
